FAERS Safety Report 5318491-0 (Version None)
Quarter: 2007Q2

REPORT INFORMATION
  Report Type: 
  Country: None (occurrence: None)
  Receive Date: 20070501
  Receipt Date: 20070326
  Transmission Date: 20071010
  Serious: Yes (Hospitalization)
  Sender: FDA-Public Use
  Company Number: T200700252

PATIENT
  Age: 54 Year
  Sex: Male

DRUGS (6)
  1. OPTIRAY (IOVERSOL) SOLUTION FOR INJECTION [Suspect]
     Indication: UROGRAM
     Dosage: SINGLE, INTRAVENOUS
     Route: 042
     Dates: start: 20070117, end: 20070117
  2. LASIX [Suspect]
     Indication: UROGRAM
     Dosage: 1 TABLET, SINGLE, ORAL
     Route: 048
     Dates: start: 20070117, end: 20070117
  3. NUROFEN (IBUPROFEN) UNKNOWN, 200MG [Suspect]
     Dosage: 200 MG, SINGLE, ORAL
     Route: 048
     Dates: start: 20070121, end: 20070121
  4. HUMEX (CARBINOXAMINE, PARACETAMOL, PHENYLPROPANOLAMINE) [Concomitant]
  5. MAXILASE (AMYLASE) [Concomitant]
  6. FERVEX (ASCORBIC ACID, PARACETAMOL, PHENIRAMINE MALEATE) [Concomitant]

REACTIONS (5)
  - ACUTE GENERALISED EXANTHEMATOUS PUSTULOSIS [None]
  - EOSINOPHILIA [None]
  - NEUTROPHILIA [None]
  - PYREXIA [None]
  - RASH [None]
